FAERS Safety Report 12684513 (Version 1)
Quarter: 2016Q3

REPORT INFORMATION
  Report Type: Spontaneous
  Country: GB (occurrence: GB)
  Receive Date: 20160825
  Receipt Date: 20160825
  Transmission Date: 20161109
  Serious: Yes (Disabling)
  Sender: FDA-Public Use
  Company Number: GB-TEVA-685566ACC

PATIENT
  Age: 80 Year

DRUGS (7)
  1. SENNA [Concomitant]
     Active Substance: SENNA LEAF\SENNOSIDES\SENNOSIDES A AND B
  2. VENLAFAXINE [Suspect]
     Active Substance: VENLAFAXINE HYDROCHLORIDE
     Indication: DEPRESSION
     Route: 048
  3. DOCUSATE [Concomitant]
     Active Substance: DOCUSATE
  4. BICALUTAMIDE. [Concomitant]
     Active Substance: BICALUTAMIDE
  5. VENLAFAXINE [Suspect]
     Active Substance: VENLAFAXINE HYDROCHLORIDE
     Route: 048
  6. LORAZEPAM. [Concomitant]
     Active Substance: LORAZEPAM
  7. SIMVASTATIN. [Concomitant]
     Active Substance: SIMVASTATIN

REACTIONS (2)
  - Myoclonus [Recovered/Resolved]
  - Hypokinesia [Recovered/Resolved]
